FAERS Safety Report 23376795 (Version 2)
Quarter: 2024Q1

REPORT INFORMATION
  Report Type: Report from Study
  Country: IT (occurrence: IT)
  Receive Date: 20240108
  Receipt Date: 20240207
  Transmission Date: 20240410
  Serious: Yes (Other)
  Sender: FDA-Public Use
  Company Number: None

PATIENT
  Age: 68 Year
  Sex: Male

DRUGS (3)
  1. EYLEA [Suspect]
     Active Substance: AFLIBERCEPT
     Indication: Product used for unknown indication
     Dosage: 340 MG, ONCE; Q2WK, SOLUTION FOR INJECTION, 40MG/ML
     Route: 042
     Dates: start: 20221130, end: 20221130
  2. EYLEA [Suspect]
     Active Substance: AFLIBERCEPT
     Dosage: 340 MG, ONCE; Q2WK, SOLUTION FOR INJECTION, 40MG/ML
     Dates: start: 20231220
  3. DENOSUMAB [Suspect]
     Active Substance: DENOSUMAB
     Indication: Metastases to bone
     Dosage: 120 MG; EVERY 28 DAYS
     Route: 042
     Dates: start: 202307, end: 202311

REACTIONS (1)
  - Osteonecrosis of jaw [Not Recovered/Not Resolved]

NARRATIVE: CASE EVENT DATE: 20231120
